FAERS Safety Report 4435760-7 (Version None)
Quarter: 2004Q3

REPORT INFORMATION
  Report Type: 
  Country: None (occurrence: None)
  Receive Date: 20040826
  Receipt Date: 20040816
  Transmission Date: 20050211
  Serious: Yes (Hospitalization)
  Sender: FDA-Public Use
  Company Number: 001-0981-996729

PATIENT
  Age: 71 Year
  Sex: Male
  Weight: 133.8111 kg

DRUGS (6)
  1. ATORVASTATIN CALCIUM [Suspect]
     Indication: CORONARY ARTERY DISEASE
     Dosage: 10 MG DAILY, ORAL; 10 OR 80 MG DAILY, ORAL
     Route: 048
     Dates: start: 19990104, end: 19990224
  2. ATORVASTATIN CALCIUM [Suspect]
     Indication: CORONARY ARTERY DISEASE
     Dosage: 10 MG DAILY, ORAL; 10 OR 80 MG DAILY, ORAL
     Route: 048
     Dates: start: 19990225
  3. METOPROLOL (METOPROLOL) [Concomitant]
  4. TOCOPHEROL CONCENTRATE CAP [Concomitant]
  5. ACETYLSALICYLIC ACID SRT [Concomitant]
  6. KARVEA HCT (HYDROCHLOROTHIAZIDE, IRBESARTAN) [Concomitant]

REACTIONS (4)
  - BENIGN PROSTATIC HYPERPLASIA [None]
  - PAIN [None]
  - PROSTATITIS [None]
  - URINARY HESITATION [None]
